FAERS Safety Report 4830973-4 (Version None)
Quarter: 2005Q4

REPORT INFORMATION
  Report Type: 
  Country: None (occurrence: None)
  Receive Date: 20051111
  Receipt Date: 20051108
  Transmission Date: 20060501
  Serious: No
  Sender: FDA-Public Use
  Company Number: 2005-134285-NL

PATIENT
  Age: 29 Year
  Sex: Female

DRUGS (1)
  1. NUVARING [Suspect]
     Indication: CONTRACEPTION
     Dosage: DF VAGINAL
     Route: 067
     Dates: start: 20030101, end: 20050101

REACTIONS (8)
  - ABDOMINAL PAIN LOWER [None]
  - BODY TEMPERATURE INCREASED [None]
  - CERVICITIS [None]
  - METRORRHAGIA [None]
  - PAPILLOMA VIRAL INFECTION [None]
  - SMEAR CERVIX ABNORMAL [None]
  - STAPHYLOCOCCAL INFECTION [None]
  - VAGINAL HAEMORRHAGE [None]
